FAERS Safety Report 9375850 (Version 1)
Quarter: 2013Q2

REPORT INFORMATION
  Report Type: Spontaneous
  Country: PL (occurrence: PL)
  Receive Date: 20130628
  Receipt Date: 20130628
  Transmission Date: 20140414
  Serious: Yes (Hospitalization)
  Sender: FDA-Public Use
  Company Number: PL-MERCK-1306POL011980

PATIENT
  Age: 71 Year
  Sex: Male

DRUGS (2)
  1. SINEMET CR [Suspect]
     Dosage: 500+125 MG 5 X 1/2 , DAPPLED PEACH TABLET WITH SCORE-LINE
     Route: 048
     Dates: start: 201106, end: 20130606
  2. SINEMET CR [Suspect]
     Dosage: 500+125 5 X 1/2, DAPPLED PURPLE TABLET WITH SCORE-LINE
     Dates: start: 20130607

REACTIONS (6)
  - Adverse event [Unknown]
  - Libido decreased [Unknown]
  - Hypersexuality [Unknown]
  - Libido increased [Unknown]
  - Dizziness [Unknown]
  - Wrong technique in drug usage process [Unknown]
